FAERS Safety Report 10677124 (Version 2)
Quarter: 2015Q1

REPORT INFORMATION
  Report Type: Other
  Country: DE (occurrence: DE)
  Receive Date: 20141226
  Receipt Date: 20150116
  Transmission Date: 20150720
  Serious: Yes (Hospitalization)
  Sender: FDA-Public Use
  Company Number: DE-SPECTRUM PHARMACEUTICALS, INC.-14-M-DE-00461

PATIENT
  Sex: Male

DRUGS (14)
  1. RANITIDINE [Concomitant]
     Active Substance: RANITIDINE\RANITIDINE HYDROCHLORIDE
     Indication: PROPHYLAXIS
     Dosage: 50 MG, QD
     Route: 048
     Dates: start: 20141119
  2. COTRIM FORTE EU RHO [Concomitant]
     Indication: PROPHYLAXIS
     Dosage: 960 MG, 3/WEEKS
     Route: 048
     Dates: start: 20141126
  3. VINCRISTINE SULFATE LIPOSOME [Suspect]
     Active Substance: VINCRISTINE SULFATE
     Indication: NON-HODGKIN^S LYMPHOMA
     Dosage: 3.94 MG, EVERY 2 WEEKS
     Route: 042
     Dates: start: 20141128, end: 20141128
  4. RITUXIMAB [Concomitant]
     Active Substance: RITUXIMAB
     Dosage: UNK
     Route: 042
     Dates: start: 20141128, end: 20141128
  5. FILGRASTIM [Concomitant]
     Active Substance: FILGRASTIM
     Indication: NON-HODGKIN^S LYMPHOMA
     Dosage: 48 MIO/IE, PRN
     Route: 058
     Dates: start: 20141218, end: 20141218
  6. CYCLOPHOSPHAMIDE. [Suspect]
     Active Substance: CYCLOPHOSPHAMIDE
     Indication: NON-HODGKIN^S LYMPHOMA
     Dosage: 1514.7 MG, EVERY 2 WEEKS
     Route: 042
     Dates: start: 20141128, end: 20141128
  7. AMPHO-MORONAL [Concomitant]
     Active Substance: AMPHOTERICIN B
     Indication: PROPHYLAXIS
     Dosage: 100 MG/ML, 4/D
     Route: 048
     Dates: start: 20141127
  8. FINASTERIDE HEXAL [Concomitant]
     Indication: PROPHYLAXIS
     Dosage: 5 MG, QD
     Route: 048
     Dates: start: 20141120
  9. RITUXIMAB [Concomitant]
     Active Substance: RITUXIMAB
     Dosage: UNK
     Route: 042
     Dates: start: 20141127, end: 20141127
  10. DOXORUBICIN [Suspect]
     Active Substance: DOXORUBICIN
     Indication: NON-HODGKIN^S LYMPHOMA
     Dosage: 100.98 MG, EVERY 2 WEEKS
     Route: 042
     Dates: start: 20141128, end: 20141128
  11. VITAMIN D                          /00107901/ [Concomitant]
     Active Substance: ERGOCALCIFEROL
     Indication: VITAMIN D DEFICIENCY
     Dosage: 1000 IE, ONCE A DAY
     Route: 048
     Dates: start: 20141127
  12. RITUXIMAB [Concomitant]
     Active Substance: RITUXIMAB
     Dosage: UNK
     Route: 042
     Dates: start: 20141201, end: 20141201
  13. RITUXIMAB [Concomitant]
     Active Substance: RITUXIMAB
     Indication: NON-HODGKIN^S LYMPHOMA
     Dosage: 757.35 MG, EVERY 2 WEEKS
     Route: 042
     Dates: start: 20141125, end: 20141125
  14. PREDNISOLON                        /00016201/ [Concomitant]
     Active Substance: PREDNISOLONE
     Indication: NON-HODGKIN^S LYMPHOMA
     Dosage: 100 MG, 5 DAYS EVERY 2 WEEKS
     Route: 048
     Dates: start: 20141128, end: 20141202

REACTIONS (1)
  - Rectal haemorrhage [Recovered/Resolved]

NARRATIVE: CASE EVENT DATE: 20141215
